FAERS Safety Report 24439741 (Version 1)
Quarter: 2024Q4

REPORT INFORMATION
  Report Type: Report from Study
  Country: US (occurrence: US)
  Receive Date: 20241015
  Receipt Date: 20241015
  Transmission Date: 20250115
  Serious: Yes (Hospitalization, Other)
  Sender: JAZZ
  Company Number: US-JAZZ PHARMACEUTICALS-2024-US-008730

PATIENT
  Age: 12 Year
  Sex: Male
  Weight: 43.084 kg

DRUGS (3)
  1. EPIDIOLEX [Suspect]
     Active Substance: CANNABIDIOL
     Indication: Niemann-Pick disease
     Dosage: 2 MILLILITER, BID
     Route: 048
     Dates: start: 202404
  2. EPIDIOLEX [Suspect]
     Active Substance: CANNABIDIOL
     Indication: Epilepsy
     Dosage: GTUBE
  3. MIGLUSTAT [Concomitant]
     Active Substance: MIGLUSTAT
     Dosage: UNK

REACTIONS (5)
  - Seizure [Unknown]
  - Aspiration [Unknown]
  - Pain in extremity [Unknown]
  - Cough [Unknown]
  - Weight increased [Unknown]

NARRATIVE: CASE EVENT DATE: 20240523
